FAERS Safety Report 21671224 (Version 1)
Quarter: 2022Q4

REPORT INFORMATION
  Report Type: Spontaneous
  Country: US (occurrence: US)
  Receive Date: 20221202
  Receipt Date: 20221202
  Transmission Date: 20230113
  Serious: No
  Sender: FDA-Public Use
  Company Number: US-SA-SAC20221130000911

PATIENT
  Sex: Male

DRUGS (1)
  1. DUPIXENT [Suspect]
     Active Substance: DUPILUMAB
     Indication: Eczema
     Dosage: 300 MG, QOW
     Route: 058
     Dates: start: 202008

REACTIONS (4)
  - Fatigue [Recovered/Resolved]
  - Irregular breathing [Recovered/Resolved]
  - Sleep deficit [Recovered/Resolved]
  - Insomnia [Recovered/Resolved]
